FAERS Safety Report 6298293-1 (Version None)
Quarter: 2009Q3

REPORT INFORMATION
  Report Type: 
  Country: None (occurrence: None)
  Receive Date: 20090805
  Receipt Date: 20090731
  Transmission Date: 20100115
  Serious: Yes (Other)
  Sender: FDA-Public Use
  Company Number: JP-ROXANE LABORATORIES, INC.-2009-RO-00767RO

PATIENT
  Age: 61 Year
  Sex: Female

DRUGS (4)
  1. DEXAMETHASONE [Suspect]
     Indication: MULTIPLE MYELOMA
  2. CYCLOPHOSPHAMIDE [Suspect]
     Indication: MULTIPLE MYELOMA
     Dates: start: 20070701
  3. NEUPOGEN [Suspect]
     Indication: MULTIPLE MYELOMA
     Dates: start: 20070701
  4. MELPHALAN [Suspect]
     Indication: STEM CELL TRANSPLANT
     Dates: start: 20070801

REACTIONS (1)
  - ACUTE LYMPHOCYTIC LEUKAEMIA [None]
